FAERS Safety Report 4524457-0 (Version None)
Quarter: 2004Q4

REPORT INFORMATION
  Report Type: 
  Country: None (occurrence: None)
  Receive Date: 20041116
  Receipt Date: 20041018
  Transmission Date: 20050328
  Serious: No
  Sender: FDA-Public Use
  Company Number: PHEH2004US09521

PATIENT
  Age: 65 Year
  Sex: Female

DRUGS (5)
  1. GLEEVEC [Suspect]
     Indication: CHRONIC MYELOID LEUKAEMIA
     Dosage: SEE IMAGE
     Dates: start: 20010701
  2. GLEEVEC [Suspect]
     Indication: CHRONIC MYELOID LEUKAEMIA
     Dosage: SEE IMAGE
     Dates: start: 20030101
  3. COMBIVENT [Concomitant]
  4. FLOVENT [Concomitant]
  5. CELEXA [Concomitant]

REACTIONS (9)
  - MUSCLE CRAMP [None]
  - PERIORBITAL OEDEMA [None]
  - PRURITUS GENERALISED [None]
  - PURPURA [None]
  - RASH ERYTHEMATOUS [None]
  - RASH GENERALISED [None]
  - RASH PAPULAR [None]
  - RASH PRURITIC [None]
  - VITILIGO [None]
